FAERS Safety Report 16138578 (Version 1)
Quarter: 2019Q2

REPORT INFORMATION
  Report Type: Spontaneous
  Country: US (occurrence: US)
  Receive Date: 20190401
  Receipt Date: 20190401
  Transmission Date: 20190711
  Serious: No
  Sender: FDA-Public Use
  Company Number: US-GLAXOSMITHKLINE-US2019056553

PATIENT
  Sex: Female

DRUGS (1)
  1. VENTOLIN HFA [Suspect]
     Active Substance: ALBUTEROL SULFATE
     Indication: PROPHYLAXIS
     Dosage: 1 PUFF(S), WE
     Route: 055
     Dates: start: 2018

REACTIONS (3)
  - Product use in unapproved indication [Unknown]
  - Wrong patient received product [Unknown]
  - Incorrect dosage administered [Unknown]
